FAERS Safety Report 13780037 (Version 1)
Quarter: 2017Q3

REPORT INFORMATION
  Report Type: Spontaneous
  Country: BR (occurrence: BR)
  Receive Date: 20170723
  Receipt Date: 20170723
  Transmission Date: 20171127
  Serious: Yes (Disabling, Other)
  Sender: FDA-Public Use
  Company Number: BR-ROCHE-1962744

PATIENT
  Sex: Female

DRUGS (1)
  1. RIVOTRIL [Suspect]
     Active Substance: CLONAZEPAM
     Indication: PRODUCT USED FOR UNKNOWN INDICATION
     Route: 065

REACTIONS (11)
  - Emotional disorder [Unknown]
  - Back disorder [Unknown]
  - Exostosis [Unknown]
  - Fall [Unknown]
  - Herpes virus infection [Unknown]
  - Arrhythmia [Unknown]
  - Intervertebral disc protrusion [Unknown]
  - Spinal column injury [Unknown]
  - Fibromyalgia [Unknown]
  - Blood pressure abnormal [Unknown]
  - Osteoarthritis [Unknown]
